FAERS Safety Report 5801916-1 (Version None)
Quarter: 2008Q3

REPORT INFORMATION
  Report Type: 
  Country: None (occurrence: None)
  Receive Date: 20080707
  Receipt Date: 20080623
  Transmission Date: 20090109
  Serious: Yes (Other)
  Sender: FDA-Public Use
  Company Number: ES-ELI_LILLY_AND_COMPANY-ES200806005157

PATIENT
  Age: 81 Year
  Sex: Male

DRUGS (1)
  1. CYMBALTA [Suspect]
     Dosage: 30 MG, UNKNOWN
     Route: 048
     Dates: start: 20080102, end: 20080510

REACTIONS (2)
  - DISTURBANCE IN SEXUAL AROUSAL [None]
  - LIBIDO INCREASED [None]
